FAERS Safety Report 16982297 (Version 2)
Quarter: 2020Q1

REPORT INFORMATION
  Report Type: Spontaneous
  Country: US (occurrence: US)
  Receive Date: 20191101
  Receipt Date: 20200205
  Transmission Date: 20200409
  Serious: Yes (Death, Hospitalization, Other)
  Sender: FDA-Public Use
  Company Number: US-B.I. PHARMACEUTICALS,INC./RIDGEFIELD-2019-BI-111155

PATIENT
  Sex: Female

DRUGS (1)
  1. JARDIANCE [Suspect]
     Active Substance: EMPAGLIFLOZIN
     Indication: TYPE 2 DIABETES MELLITUS
     Route: 048
     Dates: start: 20160314

REACTIONS (5)
  - Fournier^s gangrene [Unknown]
  - Renal failure [Unknown]
  - Sepsis [Unknown]
  - Death [Fatal]
  - Organ failure [Unknown]

NARRATIVE: CASE EVENT DATE: 20160416
